FAERS Safety Report 6554091-2 (Version None)
Quarter: 2010Q1

REPORT INFORMATION
  Report Type: 
  Country: None (occurrence: None)
  Receive Date: 20100127
  Receipt Date: 20100115
  Transmission Date: 20100710
  Serious: Yes (Death, Life-Threatening, Other)
  Sender: FDA-Public Use
  Company Number: TH-ELI_LILLY_AND_COMPANY-TH200910001313

PATIENT
  Age: 58 Year
  Sex: Male

DRUGS (13)
  1. ZYPREXA [Suspect]
     Indication: DELIRIUM
     Dosage: 5 MG, DAILY (1/D)
     Route: 048
     Dates: start: 20090929, end: 20090930
  2. DIAZEPAM [Concomitant]
     Dosage: 2 MG, EVERY 6 HRS
     Dates: start: 20090929
  3. LEXAPRO [Concomitant]
     Dosage: 10 MG, DAILY (1/D)
     Dates: start: 20090929
  4. ARICEPT [Concomitant]
     Dosage: 5 MG, DAILY (1/D)
     Dates: start: 20090929
  5. CLONAZEPAM [Concomitant]
     Dosage: 2 MG, DAILY (1/D)
     Dates: start: 20090929
  6. FENOFIBRATE [Concomitant]
     Dosage: 160 MG, DAILY (1/D)
  7. FOLIC ACID [Concomitant]
     Dosage: 5 MG, DAILY (1/D)
  8. KETOSTERIL [Concomitant]
     Dosage: 2 UNK, 3/D
  9. LIPITOR [Concomitant]
     Dosage: 20 MG, DAILY (1/D)
  10. METOPROLOL [Concomitant]
     Dosage: 100 MG, 2/D
  11. PLAVIX [Concomitant]
     Dosage: 75 MG, DAILY (1/D)
  12. VANCOMYCIN [Concomitant]
     Dosage: 500 MG, 3/W
  13. ZANIDIP [Concomitant]
     Dosage: 10 MG, DAILY (1/D)

REACTIONS (2)
  - CARDIAC ARREST [None]
  - OFF LABEL USE [None]
